FAERS Safety Report 4527545-8 (Version None)
Quarter: 2004Q4

REPORT INFORMATION
  Report Type: 
  Country: None (occurrence: None)
  Receive Date: 20041130
  Receipt Date: 20040927
  Transmission Date: 20050328
  Serious: No
  Sender: FDA-Public Use
  Company Number: WAES 0409USA02308

PATIENT
  Sex: Female
  Weight: 56.246 kg

DRUGS (10)
  1. ZETIA [Suspect]
     Indication: HYPERLIPIDAEMIA
     Dosage: 10 MG/DAILY/PO
     Route: 048
  2. FOLTX [Concomitant]
  3. OMEGA-3 [Concomitant]
  4. SYNTHROID [Concomitant]
  5. TUMS [Concomitant]
  6. VASOTEC [Concomitant]
  7. ASPIRIN [Concomitant]
  8. ATENOLOL [Concomitant]
  9. MECLIZINE [Concomitant]
  10. NITROGLYCERIN [Concomitant]

REACTIONS (2)
  - FLATULENCE [None]
  - MYALGIA [None]
